FAERS Safety Report 4512036-0 (Version None)
Quarter: 2004Q4

REPORT INFORMATION
  Report Type: 
  Country: None (occurrence: None)
  Receive Date: 20041123
  Receipt Date: 20041117
  Transmission Date: 20050328
  Serious: Yes (Life-Threatening)
  Sender: FDA-Public Use
  Company Number: D01200404475

PATIENT
  Age: 70 Year
  Sex: Female
  Weight: 57.3 kg

DRUGS (23)
  1. RASBURICASE - SOLUTION - 0.2 MG/KG [Suspect]
     Indication: HYPERURICAEMIA
     Dosage: 0.2 MG/KG QD - INTRAVENOUS NOS
     Route: 042
     Dates: start: 20040921, end: 20040923
  2. RASBURICASE - SOLUTION - 0.2 MG/KG [Suspect]
     Indication: LEUKAEMIA
     Dosage: 0.2 MG/KG QD - INTRAVENOUS NOS
     Route: 042
     Dates: start: 20040921, end: 20040923
  3. RASBURICASE - SOLUTION - 0.2 MG/KG [Suspect]
     Indication: LYMPHOMA
     Dosage: 0.2 MG/KG QD - INTRAVENOUS NOS
     Route: 042
     Dates: start: 20040921, end: 20040923
  4. RASBURICASE - SOLUTION - 0.2 MG/KG [Suspect]
     Indication: TUMOUR LYSIS SYNDROME
     Dosage: 0.2 MG/KG QD - INTRAVENOUS NOS
     Route: 042
     Dates: start: 20040921, end: 20040923
  5. ALLOPURINOL [Suspect]
     Dosage: 300 MG QD - ORAL
     Route: 048
     Dates: start: 20040923, end: 20040925
  6. VANCOMYCIN [Concomitant]
  7. CEFTAZIDIME [Concomitant]
  8. NAFCILLIN [Concomitant]
  9. ACYCLOVIR [Concomitant]
  10. ITRACONAZOLE [Concomitant]
  11. CIPROFLOXACIN [Concomitant]
  12. NEUPOGEN [Concomitant]
  13. CILASTATIN SODIUM, IMIPENEM [Concomitant]
  14. CASPOFUNGIN ACETATE [Concomitant]
  15. GRANISETRON [Concomitant]
  16. DOCUSATE SODIUM [Concomitant]
  17. SENNA [Concomitant]
  18. HALOPERIDOL [Concomitant]
  19. LORAZEPAM [Concomitant]
  20. CALCIUM ACETATE [Concomitant]
  21. METOCLOPRAMIDE [Concomitant]
  22. DIPHENHYDRAMINE HYDROCHLORIDE [Concomitant]
  23. PARACETAMOL [Concomitant]

REACTIONS (9)
  - CHOLELITHIASIS [None]
  - GASTROINTESTINAL HAEMORRHAGE [None]
  - HAEMATURIA [None]
  - HEPATITIS B ANTIBODY POSITIVE [None]
  - HEPATOTOXICITY [None]
  - PLATELET COUNT DECREASED [None]
  - PULMONARY HAEMORRHAGE [None]
  - RENAL FAILURE [None]
  - SEPSIS [None]
